FAERS Safety Report 5162629-5 (Version None)
Quarter: 2006Q4

REPORT INFORMATION
  Report Type: 
  Country: None (occurrence: None)
  Receive Date: 20061201
  Receipt Date: 20061120
  Transmission Date: 20070319
  Serious: Yes (Other)
  Sender: FDA-Public Use
  Company Number: DEWYE617022NOV06

PATIENT
  Sex: Female
  Weight: 44 kg

DRUGS (4)
  1. ENBREL [Suspect]
     Indication: JUVENILE ARTHRITIS
     Route: 058
     Dates: start: 20060505, end: 20060530
  2. ACETAMINOPHEN [Concomitant]
  3. FOLIC ACID [Concomitant]
  4. METHOTREXATE [Concomitant]

REACTIONS (2)
  - COLOUR BLINDNESS [None]
  - OPTIC NEURITIS RETROBULBAR [None]
